FAERS Safety Report 8360234-0 (Version None)
Quarter: 2012Q2

REPORT INFORMATION
  Report Type: 
  Country: None (occurrence: None)
  Receive Date: 20120515
  Receipt Date: 20110629
  Transmission Date: 20120825
  Serious: No
  Sender: FDA-Public Use
  Company Number: US-ALEXION-A201100996

PATIENT
  Sex: Male

DRUGS (2)
  1. SOLIRIS [Suspect]
     Indication: PAROXYSMAL NOCTURNAL HAEMOGLOBINURIA
     Dosage: 900 MG Q2W
     Route: 042
     Dates: start: 20100805
  2. CYCLOSPORINE [Concomitant]
     Dosage: UNK

REACTIONS (2)
  - CONSTIPATION [None]
  - ABDOMINAL DISTENSION [None]
